FAERS Safety Report 12706372 (Version 1)
Quarter: 2016Q3

REPORT INFORMATION
  Report Type: Spontaneous
  Country: GB (occurrence: GB)
  Receive Date: 20160901
  Receipt Date: 20160901
  Transmission Date: 20161109
  Serious: Yes (Life-Threatening)
  Sender: FDA-Public Use
  Company Number: GB-ASTRAZENECA-2016SE92187

PATIENT
  Age: 63 Year
  Sex: Male
  Weight: 58.2 kg

DRUGS (12)
  1. ORAMORPH [Concomitant]
     Active Substance: MORPHINE SULFATE
  2. ONDANSETRON [Concomitant]
     Active Substance: ONDANSETRON
  3. TAGRISSO [Suspect]
     Active Substance: OSIMERTINIB
     Indication: LUNG ADENOCARCINOMA
     Dosage: 80.0MG UNKNOWN
     Route: 048
     Dates: start: 20160714, end: 20160722
  4. MOVICOL [Concomitant]
     Active Substance: POLYETHYLENE GLYCOL 3350\POTASSIUM CHLORIDE\SODIUM BICARBONATE\SODIUM CHLORIDE
  5. MST CONTINUS [Concomitant]
     Active Substance: MORPHINE SULFATE
  6. PREGABALIN. [Concomitant]
     Active Substance: PREGABALIN
  7. DOCUSATE [Concomitant]
     Active Substance: DOCUSATE
  8. FOLIC ACID. [Concomitant]
     Active Substance: FOLIC ACID
  9. ZOMORPH [Concomitant]
     Active Substance: MORPHINE SULFATE
  10. PEMETREXED [Concomitant]
     Active Substance: PEMETREXED
     Indication: CHEMOTHERAPY
     Dosage: MAINTENCE THERAPY
     Dates: start: 20150430, end: 201606
  11. LANSOPRAZOLE. [Concomitant]
     Active Substance: LANSOPRAZOLE
  12. DEXAMETHASONE. [Concomitant]
     Active Substance: DEXAMETHASONE

REACTIONS (1)
  - Myocardial infarction [Recovered/Resolved with Sequelae]

NARRATIVE: CASE EVENT DATE: 20160722
